FAERS Safety Report 4828462-6 (Version None)
Quarter: 2005Q4

REPORT INFORMATION
  Report Type: 
  Country: None (occurrence: None)
  Receive Date: 20051110
  Receipt Date: 20051104
  Transmission Date: 20060501
  Serious: Yes (Death)
  Sender: FDA-Public Use
  Company Number: URSO 2005-017

PATIENT
  Age: 65 Year
  Sex: Male

DRUGS (3)
  1. URSODIOL [Suspect]
     Indication: BILIARY CIRRHOSIS PRIMARY
     Dosage: 600 MG PO
     Route: 048
     Dates: start: 20010820, end: 20050318
  2. AMINO ACID PREPARATIONS FOR HEPATIC INSUFFICIENCY (AMINOLEBAN) [Concomitant]
  3. GLYCYRRHIZIN, GLYCINE, CYSTEINE COMBINED DRUG (STRONGER NEO-MINOPHAGEN [Concomitant]

REACTIONS (6)
  - ALCOHOLIC LIVER DISEASE [None]
  - ASCITES [None]
  - HEPATIC FAILURE [None]
  - LIFE SUPPORT [None]
  - PROTHROMBIN TIME SHORTENED [None]
  - TREATMENT NONCOMPLIANCE [None]
